APPROVED DRUG PRODUCT: NULIBRY
Active Ingredient: FOSDENOPTERIN HYDROBROMIDE
Strength: EQ 9.5MG BASE/VIAL
Dosage Form/Route: POWDER;INTRAVENOUS
Application: N214018 | Product #001
Applicant: SENTYNL THERAPEUTICS INC
Approved: Feb 26, 2021 | RLD: Yes | RS: Yes | Type: RX

PATENTS:
Patent 7504095 | Expires: Apr 9, 2029

EXCLUSIVITY:
Code: NCE | Date: Feb 26, 2026
Code: ODE-342 | Date: Feb 26, 2028